FAERS Safety Report 5763289-2 (Version None)
Quarter: 2008Q2

REPORT INFORMATION
  Report Type: 
  Country: None (occurrence: None)
  Receive Date: 20080604
  Receipt Date: 20080604
  Transmission Date: 20081010
  Serious: Yes (Hospitalization)
  Sender: FDA-Public Use
  Company Number: None

PATIENT
  Sex: Male
  Weight: 157.8 kg

DRUGS (2)
  1. CLINDAMYCIN HCL [Suspect]
     Indication: CELLULITIS
     Dosage: 900 MG X1 IV
     Route: 042
     Dates: start: 20080330, end: 20080330
  2. VICODIN [Concomitant]

REACTIONS (8)
  - CONFUSIONAL STATE [None]
  - EYE ROLLING [None]
  - HEAD INJURY [None]
  - HYPERHIDROSIS [None]
  - INFUSION RELATED REACTION [None]
  - LOSS OF CONSCIOUSNESS [None]
  - NAUSEA [None]
  - TONIC CLONIC MOVEMENTS [None]
